FAERS Safety Report 10065375 (Version 2)
Quarter: 2015Q2

REPORT INFORMATION
  Report Type: Spontaneous
  Country: US (occurrence: US)
  Receive Date: 20140408
  Receipt Date: 20150413
  Transmission Date: 20150821
  Serious: Yes (Death, Life-Threatening, Hospitalization, Other)
  Sender: FDA-Public Use
  Company Number: US-MERCK-1404USA004122

PATIENT
  Sex: Female
  Weight: 65.76 kg

DRUGS (1)
  1. JANUVIA [Suspect]
     Active Substance: SITAGLIPTIN PHOSPHATE
     Indication: TYPE 2 DIABETES MELLITUS
     Dosage: 100 MG, QD
     Route: 048
     Dates: start: 20100824, end: 20120808

REACTIONS (13)
  - Surgery [Unknown]
  - Pulmonary bulla [Unknown]
  - Abdominal mass [Unknown]
  - Renal cyst [Unknown]
  - Thyroid disorder [Unknown]
  - Biopsy [Unknown]
  - Vascular calcification [Unknown]
  - Pancreatic carcinoma metastatic [Fatal]
  - Metastases to lymph nodes [Unknown]
  - Radiotherapy [Unknown]
  - Localised intraabdominal fluid collection [Unknown]
  - Osteoarthritis [Unknown]
  - Uterine leiomyoma [Unknown]

NARRATIVE: CASE EVENT DATE: 20120710
